FAERS Safety Report 9429324 (Version 2)
Quarter: 2013Q4

REPORT INFORMATION
  Report Type: Spontaneous
  Country: US (occurrence: US)
  Receive Date: 20130730
  Receipt Date: 20131203
  Transmission Date: 20140711
  Serious: Yes (Other)
  Sender: FDA-Public Use
  Company Number: US-ASTRAZENECA-2013SE55996

PATIENT
  Age: 50 Year
  Sex: Female
  Weight: 73 kg

DRUGS (11)
  1. ARIMIDEX [Suspect]
     Indication: OESTROGEN RECEPTOR POSITIVE BREAST CANCER
     Route: 048
     Dates: start: 201210
  2. METOPROLOL ER [Suspect]
     Indication: BLOOD PRESSURE ABNORMAL
     Route: 048
  3. LIPITOR [Concomitant]
     Indication: BLOOD CHOLESTEROL ABNORMAL
  4. SYNTHROID [Concomitant]
     Indication: THYROID DISORDER
  5. FISH OIL [Concomitant]
  6. VITAMIN B12 [Concomitant]
  7. ONE A DAY VITAMIN [Concomitant]
  8. VITAMIN D [Concomitant]
  9. VITAMIN C [Concomitant]
  10. CALCIUM SUPPLEMENTS [Concomitant]
  11. VITAMINS [Concomitant]

REACTIONS (12)
  - Haematoma [Unknown]
  - Mass [Unknown]
  - Ultrasound scan abnormal [Unknown]
  - Weight decreased [Unknown]
  - Lip ulceration [Unknown]
  - Lip pain [Unknown]
  - Ulcer [Unknown]
  - Lip injury [Unknown]
  - Lip dry [Unknown]
  - High density lipoprotein decreased [Unknown]
  - Non-alcoholic steatohepatitis [Unknown]
  - Vertigo [Unknown]
